FAERS Safety Report 8319099-5 (Version None)
Quarter: 2012Q2

REPORT INFORMATION
  Report Type: 
  Country: None (occurrence: None)
  Receive Date: 20120427
  Receipt Date: 20120417
  Transmission Date: 20120825
  Serious: Yes (Hospitalization, Other)
  Sender: FDA-Public Use
  Company Number: US-SHIRE-SPV1-2012-00249

PATIENT
  Sex: Male
  Weight: 29.478 kg

DRUGS (3)
  1. GUANFACINE HYDROCHLORIDE [Suspect]
     Dates: start: 20120222, end: 20120228
  2. MOTRIN [Concomitant]
     Indication: HEADACHE
     Dosage: 200 MG, UNKNOWN
     Route: 048
     Dates: start: 20120220
  3. GUANFACINE HYDROCHLORIDE [Suspect]
     Indication: PSYCHOMOTOR HYPERACTIVITY
     Dosage: UNK
     Dates: start: 20120214

REACTIONS (3)
  - AGGRESSION [None]
  - MENTAL STATUS CHANGES [None]
  - PRESSURE OF SPEECH [None]
